FAERS Safety Report 5697896-2 (Version None)
Quarter: 2008Q2

REPORT INFORMATION
  Report Type: 
  Country: None (occurrence: None)
  Receive Date: 20080404
  Receipt Date: 20080404
  Transmission Date: 20081010
  Serious: No
  Sender: FDA-Public Use
  Company Number: None

PATIENT
  Age: 71 Year
  Sex: Male
  Weight: 88.9 kg

DRUGS (1)
  1. LITHIUM CARBONATE [Suspect]
     Dosage: 600MG BID PO
     Route: 048
     Dates: start: 19950324, end: 20071206

REACTIONS (5)
  - BLOOD CREATININE INCREASED [None]
  - CHRONIC OBSTRUCTIVE PULMONARY DISEASE [None]
  - CONDITION AGGRAVATED [None]
  - NEPHROGENIC DIABETES INSIPIDUS [None]
  - THERAPEUTIC AGENT TOXICITY [None]
